FAERS Safety Report 24831583 (Version 1)
Quarter: 2025Q1

REPORT INFORMATION
  Report Type: Spontaneous
  Country: US (occurrence: US)
  Receive Date: 20250110
  Receipt Date: 20250110
  Transmission Date: 20250409
  Serious: No
  Sender: BAYER HEALTHCARE LLC
  Company Number: US-BAYER-2024A179831

PATIENT
  Sex: Female

DRUGS (2)
  1. CLARITIN [Suspect]
     Active Substance: LORATADINE
  2. ACTEMRA [Concomitant]
     Active Substance: TOCILIZUMAB

REACTIONS (3)
  - Adverse event [None]
  - Urticaria [Unknown]
  - Pruritus [Unknown]
